FAERS Safety Report 5168765-1 (Version None)
Quarter: 2006Q4

REPORT INFORMATION
  Report Type: 
  Country: None (occurrence: None)
  Receive Date: 20061211
  Receipt Date: 20061128
  Transmission Date: 20070319
  Serious: Yes (Disabling)
  Sender: FDA-Public Use
  Company Number: HQWYE742129NOV06

PATIENT
  Sex: Female
  Weight: 40 kg

DRUGS (6)
  1. ENBREL [Suspect]
     Indication: RHEUMATOID ARTHRITIS
     Route: 058
     Dates: start: 20050523, end: 20061013
  2. METHOTREXATE [Concomitant]
     Indication: RHEUMATOID ARTHRITIS
     Route: 048
     Dates: end: 20050721
  3. MAGNESIUM OXIDE [Concomitant]
     Dosage: UNKNOWN
     Route: 048
  4. FOLIAMIN [Concomitant]
     Dosage: UNKNOWN
     Route: 048
  5. ACTARIT [Concomitant]
     Dosage: UNKNOWN
     Route: 048
  6. LANSOPRAZOLE [Concomitant]
     Dosage: UNKNOWN
     Route: 048

REACTIONS (3)
  - LABORATORY TEST ABNORMAL [None]
  - LUNG NEOPLASM [None]
  - TUBERCULOSIS SKIN TEST POSITIVE [None]
